FAERS Safety Report 9746708 (Version 4)
Quarter: 2014Q1

REPORT INFORMATION
  Report Type: Spontaneous
  Country: TH (occurrence: TH)
  Receive Date: 20131211
  Receipt Date: 20140110
  Transmission Date: 20141002
  Serious: Yes (Death)
  Sender: FDA-Public Use
  Company Number: TH-EISAI INC-E7389-04511-SPO-TH

PATIENT
  Age: 54 Year
  Sex: Female
  Weight: 40 kg

DRUGS (8)
  1. HALAVEN [Suspect]
     Indication: BREAST CANCER METASTATIC
     Dosage: 2 MG
     Route: 041
     Dates: start: 20131120, end: 20131120
  2. FORTUM [Concomitant]
     Indication: SEPSIS
     Dates: start: 20131119, end: 20131123
  3. MORPHINE [Concomitant]
     Dosage: UNKNOWN
  4. LORAZEPAM [Concomitant]
     Dosage: UNKNOWN
  5. OMEPRAZOLE [Concomitant]
     Dosage: UNKNOWN
     Route: 042
  6. ZANIDIP [Concomitant]
     Dosage: UNKNOWN
     Route: 048
  7. FORLAX [Concomitant]
     Dosage: UNKNOWN
     Route: 048
  8. BERADUAL [Concomitant]
     Dosage: UNKNOWN
     Route: 055

REACTIONS (2)
  - Renal failure acute [Fatal]
  - Confusional state [Not Recovered/Not Resolved]
